FAERS Safety Report 5736833-9 (Version None)
Quarter: 2008Q2

REPORT INFORMATION
  Report Type: 
  Country: None (occurrence: None)
  Receive Date: 20080508
  Receipt Date: 20080422
  Transmission Date: 20081010
  Serious: Yes (Other)
  Sender: FDA-Public Use
  Company Number: 8028204

PATIENT
  Age: 6 Year
  Sex: Male
  Weight: 23 kg

DRUGS (2)
  1. METHYLPHENIDATE HCL [Suspect]
     Dosage: 20 MG /D
     Dates: start: 20061205, end: 20070130
  2. METHYLPHENIDATE /00083802/ [Concomitant]

REACTIONS (6)
  - ANXIETY [None]
  - APATHY [None]
  - FATIGUE [None]
  - GASTROINTESTINAL PAIN [None]
  - SOCIAL AVOIDANT BEHAVIOUR [None]
  - TIC [None]
